FAERS Safety Report 19124913 (Version 1)
Quarter: 2021Q2

REPORT INFORMATION
  Report Type: Report from Study
  Country: CA (occurrence: CA)
  Receive Date: 20210413
  Receipt Date: 20210413
  Transmission Date: 20210717
  Serious: Yes (Hospitalization)
  Sender: FDA-Public Use
  Company Number: CA-ROCHE-2793859

PATIENT
  Age: 76 Year
  Sex: Male
  Weight: 91 kg

DRUGS (18)
  1. PYRIDOXINE [Concomitant]
     Active Substance: PYRIDOXINE
     Route: 048
  2. ACYCLOVIR. [Concomitant]
     Active Substance: ACYCLOVIR
     Route: 048
  3. METFORMIN [Concomitant]
     Active Substance: METFORMIN HYDROCHLORIDE
     Route: 048
  4. LOSARTAN. [Concomitant]
     Active Substance: LOSARTAN
     Route: 048
  5. HYDROCHLOROTHIAZIDE. [Concomitant]
     Active Substance: HYDROCHLOROTHIAZIDE
     Route: 048
  6. HYDROXYUREA. [Concomitant]
     Active Substance: HYDROXYUREA
     Route: 048
  7. FLUCONAZOLE. [Concomitant]
     Active Substance: FLUCONAZOLE
     Route: 048
  8. SALINE [Concomitant]
     Active Substance: SODIUM CHLORIDE
     Route: 042
     Dates: start: 20210315, end: 20210325
  9. RIBAVIRIN. [Suspect]
     Active Substance: RIBAVIRIN
     Indication: ACUTE MYELOID LEUKAEMIA
     Dosage: CYCLE 1 DAY 1
     Route: 048
     Dates: start: 20210302, end: 20210315
  10. DECITABINE. [Suspect]
     Active Substance: DECITABINE
     Indication: ACUTE MYELOID LEUKAEMIA
     Dosage: CYCLE 1 DAY 7
     Route: 042
     Dates: start: 20210223, end: 20210227
  11. TAMSULOSIN [Concomitant]
     Active Substance: TAMSULOSIN
     Route: 048
  12. CETIRIZINE [Concomitant]
     Active Substance: CETIRIZINE HYDROCHLORIDE
     Route: 048
  13. ALLOPURINOL. [Concomitant]
     Active Substance: ALLOPURINOL
     Route: 048
  14. VISMODEGIB. [Suspect]
     Active Substance: VISMODEGIB
     Indication: ACUTE MYELOID LEUKAEMIA
     Dosage: CYCLE 1 DAY 1
     Route: 048
     Dates: start: 20210302, end: 20210315
  15. VENLAFAXINE [Concomitant]
     Active Substance: VENLAFAXINE HYDROCHLORIDE
     Route: 048
  16. ERTAPENEM. [Concomitant]
     Active Substance: ERTAPENEM SODIUM
     Route: 042
  17. ISONIAZID. [Concomitant]
     Active Substance: ISONIAZID
     Route: 048
  18. ATORVASTATIN [Concomitant]
     Active Substance: ATORVASTATIN
     Route: 048

REACTIONS (1)
  - Peripheral sensory neuropathy [Recovered/Resolved]

NARRATIVE: CASE EVENT DATE: 20210315
